FAERS Safety Report 23716228 (Version 1)
Quarter: 2024Q2

REPORT INFORMATION
  Report Type: Other
  Country: US (occurrence: None)
  Receive Date: 20240408
  Receipt Date: 20240408
  Transmission Date: 20240715
  Serious: Yes (Hospitalization)
  Sender: FDA-Public Use
  Company Number: US-ROCHE-3533336

PATIENT
  Age: 53 Year
  Sex: Male

DRUGS (1)
  1. OCREVUS [Suspect]
     Active Substance: OCRELIZUMAB
     Indication: Multiple sclerosis
     Dosage: DATE OF RECENT INFUSION 07/SEP/2024
     Route: 042

REACTIONS (3)
  - Urinary tract infection [Unknown]
  - Respiratory syncytial virus infection [Unknown]
  - Asthenia [Unknown]
